FAERS Safety Report 4907889-8 (Version None)
Quarter: 2006Q1

REPORT INFORMATION
  Report Type: 
  Country: None (occurrence: None)
  Receive Date: 20060210
  Receipt Date: 20060126
  Transmission Date: 20060701
  Serious: Yes (Hospitalization)
  Sender: FDA-Public Use
  Company Number: US-AMGEN-US167051

PATIENT
  Age: 94 Year
  Sex: Female
  Weight: 84.4 kg

DRUGS (9)
  1. PROCRIT [Suspect]
     Indication: RENAL FAILURE CHRONIC
     Route: 058
     Dates: start: 19980101
  2. NITROGLYCERIN [Concomitant]
  3. LASIX [Concomitant]
  4. PROCARDIA [Concomitant]
  5. AVANDIA [Concomitant]
  6. CARDIZEM CD [Concomitant]
  7. PLAVIX [Concomitant]
  8. PACERONE (UPSHER-SMITH LAB) [Concomitant]
  9. ACIPHEX [Concomitant]

REACTIONS (2)
  - CARDIAC FAILURE CONGESTIVE [None]
  - CONDITION AGGRAVATED [None]
